FAERS Safety Report 7625886-9 (Version None)
Quarter: 2011Q3

REPORT INFORMATION
  Report Type: 
  Country: None (occurrence: None)
  Receive Date: 20110713
  Receipt Date: 20110708
  Transmission Date: 20111222
  Serious: Yes (Life-Threatening, Hospitalization)
  Sender: FDA-Public Use
  Company Number: 2011SP031846

PATIENT
  Age: 38 Year
  Sex: Male

DRUGS (8)
  1. MIRTAZAPINE [Suspect]
     Indication: PRODUCT USED FOR UNKNOWN INDICATION
     Dosage: 15 MG;QD;PO ; 90 MG;ONCE;PO
     Route: 048
     Dates: start: 20101001, end: 20110519
  2. MIRTAZAPINE [Suspect]
     Indication: PRODUCT USED FOR UNKNOWN INDICATION
     Dosage: 15 MG;QD;PO ; 90 MG;ONCE;PO
     Route: 048
     Dates: start: 20110519, end: 20110519
  3. XANAX [Suspect]
     Indication: PRODUCT USED FOR UNKNOWN INDICATION
     Dosage: 0.5 MG;QD;PO ; 7.5 MG;ONCE.PO
     Route: 048
     Dates: start: 20110516, end: 20110619
  4. XANAX [Suspect]
     Indication: PRODUCT USED FOR UNKNOWN INDICATION
     Dosage: 0.5 MG;QD;PO ; 7.5 MG;ONCE.PO
     Route: 048
     Dates: start: 20110516, end: 20110519
  5. PROPRANOLOL [Suspect]
     Indication: PRODUCT USED FOR UNKNOWN INDICATION
     Dosage: 40 MG;QD;PO ; 320 MG;ONCE;PO ; 40 MG;QD;PO
     Route: 048
     Dates: start: 20110501
  6. PROPRANOLOL [Suspect]
     Indication: PRODUCT USED FOR UNKNOWN INDICATION
     Dosage: 40 MG;QD;PO ; 320 MG;ONCE;PO ; 40 MG;QD;PO
     Route: 048
     Dates: start: 20110519, end: 20110519
  7. ESCITALOPRAM [Suspect]
     Indication: PRODUCT USED FOR UNKNOWN INDICATION
     Dosage: 20 MG;QD;PO ; 120 MG;ONCE;PO
     Route: 048
     Dates: start: 20100901
  8. ESCITALOPRAM [Suspect]
     Indication: PRODUCT USED FOR UNKNOWN INDICATION
     Dosage: 20 MG;QD;PO ; 120 MG;ONCE;PO
     Route: 048
     Dates: start: 20110519, end: 20110519

REACTIONS (6)
  - HEPATITIS ACUTE [None]
  - ALCOHOL USE [None]
  - REYE'S SYNDROME [None]
  - AUTOIMMUNE HEPATITIS [None]
  - TOXICITY TO VARIOUS AGENTS [None]
  - HEPATIC STEATOSIS [None]
